FAERS Safety Report 5644821-6 (Version None)
Quarter: 2008Q1

REPORT INFORMATION
  Report Type: 
  Country: None (occurrence: None)
  Receive Date: 20080229
  Receipt Date: 20070824
  Transmission Date: 20080703
  Serious: No
  Sender: FDA-Public Use
  Company Number: A0676159A

PATIENT
  Age: 49 Year
  Sex: Male

DRUGS (1)
  1. VALTREX [Suspect]
     Dosage: 500MG PER DAY
     Route: 048
     Dates: start: 20060301

REACTIONS (1)
  - DRUG INEFFECTIVE [None]
